FAERS Safety Report 6173311 (Version 8)
Quarter: 2013Q3

REPORT INFORMATION
  Report Type: Spontaneous
  Country: US (occurrence: US)
  Receive Date: 20061127
  Receipt Date: 20130731
  Transmission Date: 20140515
  Serious: Yes (Death, Hospitalization, Other)
  Sender: FDA-Public Use
  Company Number: PHEH2006US14223

PATIENT
  Age: 68 Year
  Sex: Female
  Weight: 60.5 kg

DRUGS (44)
  1. AREDIA [Suspect]
     Dosage: 90 MG, QMO
     Route: 042
     Dates: start: 20021217, end: 20040726
  2. AREDIA [Suspect]
     Route: 042
     Dates: start: 20040823, end: 20050222
  3. ZOMETA [Suspect]
     Indication: OSTEOLYSIS
     Dosage: 4 MG, QMO
     Route: 042
     Dates: start: 20040407
  4. THALIDOMIDE [Concomitant]
  5. DECADRON [Concomitant]
     Dosage: 40 MG, QW
     Route: 048
  6. NEXIUM [Concomitant]
     Dosage: 40 MG, QD
  7. ALBUTEROL [Concomitant]
  8. DUONEB [Concomitant]
     Route: 060
  9. QVAR [Concomitant]
  10. PREDNISONE [Concomitant]
     Dosage: 10 MG, QD
  11. PREDNISONE [Concomitant]
     Route: 048
  12. VICODIN [Concomitant]
  13. MORPHINE SULFATE [Concomitant]
  14. FLUZONE [Concomitant]
     Dates: start: 2005
  15. PREMARIN [Concomitant]
  16. DEXAMETHASONE [Concomitant]
  17. PNEUMOVAX [Concomitant]
  18. AMITRIPTYLINE [Concomitant]
     Dosage: 50 MG, QD
  19. SYNTHROID [Concomitant]
     Dosage: 75 UG, QD
  20. GLYBURIDE [Concomitant]
     Dosage: 1.25 MG, QD
  21. LEVAQUIN [Concomitant]
     Dosage: 750 MG, QD
     Route: 048
  22. CEPHALEXIN [Concomitant]
  23. AUGMENTIN [Concomitant]
     Dosage: 500 MG, TID
  24. ZITHROMAC [Concomitant]
     Dosage: 250 MG, QD
  25. DIFLUCAN [Concomitant]
  26. ATROVENT [Concomitant]
  27. ADVAIR [Concomitant]
  28. VERAPAMIL - SLOW RELEASE [Concomitant]
     Dosage: 240 MG, QD
  29. PHENERGAN [Concomitant]
     Route: 030
     Dates: start: 200407
  30. PHENERGAN [Concomitant]
     Route: 030
     Dates: start: 200409
  31. PROTONIX ^PHARMACIA^ [Concomitant]
  32. PROTONIX ^PHARMACIA^ [Concomitant]
     Dosage: 40 MG, BID
  33. LISINOPRIL [Concomitant]
     Dosage: 10 MG, QD
     Route: 048
  34. GLUCOVANCE [Concomitant]
  35. METFORMIN [Concomitant]
     Dosage: 250 MG, QD
  36. SOLU-MEDROL [Concomitant]
     Dosage: 60 MG, Q6H
     Route: 042
  37. ROCEPHIN [Concomitant]
     Route: 042
  38. VINCRISTINE [Concomitant]
  39. ADRIAMYCIN [Concomitant]
  40. OXYCONTIN [Concomitant]
     Dosage: 20 MG, Q12H
  41. BIAXIN [Concomitant]
     Dosage: 500 MG, Q12H
  42. CEFTIN [Concomitant]
     Dosage: 250 MG, BID
  43. ASPIRIN ^BAYER^ [Concomitant]
     Route: 048
  44. NITROGLYCERIN ^A.L.^ [Concomitant]
     Route: 042

REACTIONS (60)
  - Chronic obstructive pulmonary disease [Fatal]
  - Respiratory acidosis [Fatal]
  - Hypercapnia [Fatal]
  - Cor pulmonale [Fatal]
  - Dyspnoea [Fatal]
  - Oedema peripheral [Fatal]
  - Mobility decreased [Fatal]
  - Anxiety [Fatal]
  - Suffocation feeling [Fatal]
  - Respiratory failure [Fatal]
  - Plasma cell myeloma recurrent [Fatal]
  - Diabetes mellitus [Unknown]
  - Osteoporosis [Unknown]
  - Osteonecrosis of jaw [Recovering/Resolving]
  - Osteomyelitis [Unknown]
  - Oral mucosal exfoliation [Recovering/Resolving]
  - Injury [Unknown]
  - Pain [Recovering/Resolving]
  - Decreased interest [Unknown]
  - Oral disorder [Unknown]
  - Gingivitis [Unknown]
  - Decreased appetite [Unknown]
  - General physical health deterioration [Unknown]
  - Life expectancy shortened [Unknown]
  - Weight decreased [Unknown]
  - Dysphagia [Unknown]
  - Sinusitis [Unknown]
  - Abscess [Unknown]
  - Arthralgia [Unknown]
  - Back pain [Unknown]
  - Infection [Unknown]
  - Inflammation [Unknown]
  - Biopsy bone abnormal [Unknown]
  - Primary sequestrum [Unknown]
  - Actinomycosis [Unknown]
  - Squamous cell carcinoma [Unknown]
  - Actinic keratosis [Unknown]
  - Spinal compression fracture [Unknown]
  - Stomatitis [Unknown]
  - Cellulitis [Unknown]
  - Skin lesion [Unknown]
  - Headache [Unknown]
  - Hypothyroidism [Unknown]
  - Hyponatraemia [Unknown]
  - Fatigue [Unknown]
  - Pneumonia [Unknown]
  - Nausea [Unknown]
  - Pyrexia [Unknown]
  - Rash [Unknown]
  - Hypertension [Unknown]
  - Vomiting [Unknown]
  - Cardiomegaly [Unknown]
  - Pain in jaw [Unknown]
  - Oral candidiasis [Unknown]
  - Granuloma [Unknown]
  - Muscular weakness [Unknown]
  - Neuropathy peripheral [Unknown]
  - Migraine [Unknown]
  - Amyloidosis [Unknown]
  - Bone cancer [Unknown]
